FAERS Safety Report 20154801 (Version 2)
Quarter: 2022Q1

REPORT INFORMATION
  Report Type: Spontaneous
  Country: PL (occurrence: PL)
  Receive Date: 20211207
  Receipt Date: 20220214
  Transmission Date: 20220424
  Serious: No
  Sender: FDA-Public Use
  Company Number: PL-SUN PHARMACEUTICAL INDUSTRIES LTD-2021RR-318199

PATIENT
  Age: 47 Year
  Sex: Female

DRUGS (15)
  1. OLANZAPINE [Suspect]
     Active Substance: OLANZAPINE
     Indication: Schizophrenia
     Route: 065
     Dates: start: 20201023
  2. SERTRALINE [Concomitant]
     Active Substance: SERTRALINE HYDROCHLORIDE
     Indication: Anxiety
     Dosage: USED FOR SHORT PERIOD (STOPPED TAKING IT REPEATEDLY DUE TO SIDE EFFECTS)
     Dates: start: 2017
  3. SERTRALINE [Concomitant]
     Active Substance: SERTRALINE HYDROCHLORIDE
     Indication: Anxiety
     Dates: start: 202007
  4. ETHAMSYLATE [Concomitant]
     Active Substance: ETHAMSYLATE
     Indication: Vaginal haemorrhage
     Dates: start: 202005
  5. HALOPERIDOL [Concomitant]
     Active Substance: HALOPERIDOL
     Indication: Abnormal behaviour
     Dosage: 3 AMPOULES A DAY
     Route: 030
     Dates: start: 202005, end: 202005
  6. BIPERIDEN [Concomitant]
     Active Substance: BIPERIDEN
     Indication: Extrapyramidal disorder
     Dates: start: 202005
  7. BIPERIDEN [Concomitant]
     Active Substance: BIPERIDEN
     Dosage: DOSE WAS INCREASED AND SUSTAINED FOR 2 WEEKS
  8. PREGABALIN [Concomitant]
     Active Substance: PREGABALIN
     Indication: Anxiety
     Dates: start: 202005, end: 202006
  9. RISPERIDONE [Concomitant]
     Active Substance: RISPERIDONE
     Indication: Psychomotor retardation
     Dates: start: 202005, end: 202005
  10. RISPERIDONE [Concomitant]
     Active Substance: RISPERIDONE
     Dosage: INCREASED TO 5 MG PER DAY OVER 9 DAYS
     Dates: start: 202005, end: 202007
  11. RISPERIDONE [Concomitant]
     Active Substance: RISPERIDONE
     Dosage: DOSE INCREASED
     Dates: start: 202007, end: 2020
  12. LAMOTRIGINE [Concomitant]
     Active Substance: LAMOTRIGINE
     Indication: Mood swings
     Dates: start: 20200616
  13. PROPRANOLOL [Concomitant]
     Active Substance: PROPRANOLOL HYDROCHLORIDE
     Indication: Anxiety
     Dates: start: 202007
  14. DIAZEPAM [Concomitant]
     Active Substance: DIAZEPAM
     Indication: Anxiety
     Dosage: INITIALLY ON DEMAND
     Dates: start: 202007, end: 2020
  15. DIAZEPAM [Concomitant]
     Active Substance: DIAZEPAM
     Dates: start: 2020

REACTIONS (4)
  - Negative symptoms in schizophrenia [Recovering/Resolving]
  - Flatulence [Recovered/Resolved]
  - Weight increased [Recovering/Resolving]
  - Constipation [Recovered/Resolved]

NARRATIVE: CASE EVENT DATE: 20201001
